FAERS Safety Report 16199108 (Version 1)
Quarter: 2019Q2

REPORT INFORMATION
  Report Type: Spontaneous
  Country: IT (occurrence: IT)
  Receive Date: 20190415
  Receipt Date: 20190415
  Transmission Date: 20190711
  Serious: Yes (Hospitalization)
  Sender: FDA-Public Use
  Company Number: IT-MYLANLABS-2019M1034890

PATIENT
  Age: 33 Year
  Sex: Male

DRUGS (5)
  1. RISPERIDONE. [Suspect]
     Active Substance: RISPERIDONE
     Dosage: 2 MILLIGRAM, QD
     Dates: start: 20181002, end: 20181010
  2. SERENASE                           /00027401/ [Suspect]
     Active Substance: HALOPERIDOL
     Indication: PRODUCT USED FOR UNKNOWN INDICATION
     Dosage: 60 GTT DROPS, QD
     Route: 048
     Dates: start: 20180927
  3. BIPERIDEN [Concomitant]
     Active Substance: BIPERIDEN
  4. DIAZEPAM. [Concomitant]
     Active Substance: DIAZEPAM
  5. RISPERIDONE. [Suspect]
     Active Substance: RISPERIDONE
     Indication: PRODUCT USED FOR UNKNOWN INDICATION
     Dosage: 6 MILLIGRAM, QD
     Dates: start: 20181011

REACTIONS (4)
  - Psychotic disorder [Unknown]
  - Treatment noncompliance [Unknown]
  - Condition aggravated [Unknown]
  - Visual field defect [Unknown]

NARRATIVE: CASE EVENT DATE: 20181012
